FAERS Safety Report 24653339 (Version 1)
Quarter: 2024Q4

REPORT INFORMATION
  Report Type: Spontaneous
  Country: PL (occurrence: PL)
  Receive Date: 20241122
  Receipt Date: 20241122
  Transmission Date: 20250115
  Serious: Yes (Other)
  Sender: NOVARTIS
  Company Number: PL-002147023-NVSC2024PL219969

PATIENT
  Age: 23 Year
  Sex: Female

DRUGS (1)
  1. KESIMPTA [Suspect]
     Active Substance: OFATUMUMAB
     Indication: Multiple sclerosis
     Dosage: UNK
     Route: 065
     Dates: start: 202203, end: 202411

REACTIONS (17)
  - Urinary retention [Unknown]
  - Optic neuritis [Unknown]
  - Visual impairment [Unknown]
  - Motor dysfunction [Unknown]
  - Headache [Unknown]
  - Muscular weakness [Unknown]
  - Muscle spasms [Unknown]
  - Memory impairment [Unknown]
  - Bladder dysfunction [Unknown]
  - Micturition urgency [Unknown]
  - Urinary incontinence [Unknown]
  - Respiratory tract infection [Unknown]
  - Urinary tract infection [Unknown]
  - Hypoaesthesia [Unknown]
  - Hypertonia [Unknown]
  - Musculoskeletal chest pain [Unknown]
  - Hyperaesthesia [Unknown]

NARRATIVE: CASE EVENT DATE: 20230701
